FAERS Safety Report 21007884 (Version 1)
Quarter: 2022Q2

REPORT INFORMATION
  Report Type: Spontaneous
  Country: BR (occurrence: BR)
  Receive Date: 20220627
  Receipt Date: 20220627
  Transmission Date: 20220721
  Serious: Yes (Hospitalization)
  Sender: FDA-Public Use
  Company Number: BR-STRIDES ARCOLAB LIMITED-2022SP007650

PATIENT
  Weight: 3.6 kg

DRUGS (2)
  1. AMPICILLIN TRIHYDRATE [Suspect]
     Active Substance: AMPICILLIN TRIHYDRATE
     Indication: Antibiotic therapy
     Dosage: 500 MILLIGRAM
     Route: 065
  2. GENTAMICIN [Suspect]
     Active Substance: GENTAMICIN
     Indication: Antibiotic therapy
     Dosage: 20 MILLIGRAM
     Route: 065

REACTIONS (6)
  - Anisocytosis [Unknown]
  - Leukocytosis [Unknown]
  - Neutrophilia [Unknown]
  - Polychromasia [Unknown]
  - Respiratory alkalosis [Unknown]
  - Erythropenia [Unknown]
